FAERS Safety Report 20153497 (Version 2)
Quarter: 2022Q1

REPORT INFORMATION
  Report Type: Report from Study
  Country: CA (occurrence: CA)
  Receive Date: 20211206
  Receipt Date: 20220108
  Transmission Date: 20220423
  Serious: Yes (Hospitalization)
  Sender: FDA-Public Use
  Company Number: CA-ABBVIE-21K-028-4184981-00

PATIENT
  Age: 80 Year
  Sex: Male

DRUGS (4)
  1. VENCLEXTA [Interacting]
     Active Substance: VENETOCLAX
     Indication: Acute myeloid leukaemia
     Route: 048
     Dates: start: 20211104
  2. DIGOXIN [Suspect]
     Active Substance: DIGOXIN
     Indication: Atrial fibrillation
     Dosage: 0.125
     Route: 065
     Dates: start: 20211113
  3. AZACITIDINE [Concomitant]
     Active Substance: AZACITIDINE
     Indication: Atrial fibrillation
     Dates: start: 20211104
  4. METOPROLOL [Concomitant]
     Active Substance: METOPROLOL
     Indication: Acute myeloid leukaemia
     Dates: start: 20211113

REACTIONS (3)
  - Heart rate abnormal [Recovered/Resolved]
  - Atrial fibrillation [Recovering/Resolving]
  - Drug interaction [Unknown]

NARRATIVE: CASE EVENT DATE: 20211101
